FAERS Safety Report 25612181 (Version 1)
Quarter: 2025Q3

REPORT INFORMATION
  Report Type: Spontaneous
  Country: US (occurrence: US)
  Receive Date: 20250728
  Receipt Date: 20250728
  Transmission Date: 20251020
  Serious: No
  Sender: SANOFI AVENTIS
  Company Number: US-SA-2025SA214748

PATIENT
  Age: 68 Year
  Sex: Female

DRUGS (1)
  1. DUPIXENT [Suspect]
     Active Substance: DUPILUMAB
     Indication: Dermatitis atopic
     Dosage: 300 MG, QOW
     Route: 058
     Dates: start: 202504

REACTIONS (8)
  - Fatigue [Unknown]
  - Myalgia [Unknown]
  - Paranasal sinus discomfort [Unknown]
  - Condition aggravated [Unknown]
  - Upper-airway cough syndrome [Unknown]
  - Condition aggravated [Unknown]
  - Arthralgia [Unknown]
  - Sinus operation [Unknown]

NARRATIVE: CASE EVENT DATE: 20250101
